FAERS Safety Report 20008597 (Version 1)
Quarter: 2021Q4

REPORT INFORMATION
  Report Type: Spontaneous
  Country: DE (occurrence: DE)
  Receive Date: 20211028
  Receipt Date: 20211028
  Transmission Date: 20220303
  Serious: Yes (Death)
  Sender: FDA-Public Use
  Company Number: DE-BOEHRINGERINGELHEIM-2021-BI-134798

PATIENT
  Age: 49 Year
  Sex: Male

DRUGS (1)
  1. GILOTRIF [Suspect]
     Active Substance: AFATINIB
     Indication: Product used for unknown indication

REACTIONS (2)
  - Intestinal haemorrhage [Fatal]
  - General physical health deterioration [Fatal]
